FAERS Safety Report 15261408 (Version 1)
Quarter: 2018Q3

REPORT INFORMATION
  Report Type: Spontaneous
  Country: SE (occurrence: SE)
  Receive Date: 20180809
  Receipt Date: 20180809
  Transmission Date: 20181010
  Serious: Yes (Disabling)
  Sender: FDA-Public Use
  Company Number: SE-GLAXOSMITHKLINE-SE2018138579

PATIENT
  Sex: Female
  Weight: 70 kg

DRUGS (1)
  1. VOLTAREN [Suspect]
     Active Substance: DICLOFENAC SODIUM
     Indication: INFLAMMATION
     Dosage: ACCORDING TO INSTRUCTIONS
     Route: 065
     Dates: start: 20180129, end: 201806

REACTIONS (1)
  - Tinnitus [Recovering/Resolving]
